FAERS Safety Report 6471195-3 (Version None)
Quarter: 2009Q4

REPORT INFORMATION
  Report Type: 
  Country: None (occurrence: None)
  Receive Date: 20091203
  Receipt Date: 20080215
  Transmission Date: 20100525
  Serious: Yes (Death, Congenital Anomaly)
  Sender: FDA-Public Use
  Company Number: GB-ELI_LILLY_AND_COMPANY-GB200802005441

PATIENT

DRUGS (4)
  1. HUMULIN N [Suspect]
     Indication: DIABETES MELLITUS
     Dosage: 32 IU, EACH EVENING
     Route: 064
     Dates: start: 20070401, end: 20070401
  2. HUMULIN R [Suspect]
     Indication: DIABETES MELLITUS
     Dosage: 24 IU, 3/D
     Route: 064
     Dates: start: 20070401, end: 20070401
  3. NOVORAPID [Concomitant]
     Dosage: UNK, UNKNOWN
     Route: 064
  4. LEVEMIR [Concomitant]
     Dosage: UNK, UNKNOWN
     Route: 064

REACTIONS (3)
  - DEATH [None]
  - DRUG EXPOSURE DURING PREGNANCY [None]
  - HYDROCEPHALUS [None]
